FAERS Safety Report 25687982 (Version 1)
Quarter: 2025Q3

REPORT INFORMATION
  Report Type: Spontaneous
  Country: CN (occurrence: CN)
  Receive Date: 20250817
  Receipt Date: 20250817
  Transmission Date: 20251021
  Serious: Yes (Other)
  Sender: BEIGENE
  Company Number: CN-BEIGENE-BGN-2025-013363

PATIENT
  Age: 71 Year
  Weight: 45 kg

DRUGS (8)
  1. TISLELIZUMAB [Suspect]
     Active Substance: TISLELIZUMAB
     Indication: Small cell lung cancer
  2. TISLELIZUMAB [Suspect]
     Active Substance: TISLELIZUMAB
     Route: 041
  3. TISLELIZUMAB [Suspect]
     Active Substance: TISLELIZUMAB
     Route: 041
  4. TISLELIZUMAB [Suspect]
     Active Substance: TISLELIZUMAB
  5. ETOPOSIDE [Suspect]
     Active Substance: ETOPOSIDE
     Indication: Small cell lung cancer
     Route: 041
  6. ETOPOSIDE [Suspect]
     Active Substance: ETOPOSIDE
  7. CARBOPLATIN [Suspect]
     Active Substance: CARBOPLATIN
     Indication: Small cell lung cancer
     Route: 041
  8. CARBOPLATIN [Suspect]
     Active Substance: CARBOPLATIN

REACTIONS (4)
  - White blood cell count decreased [Recovering/Resolving]
  - Hypochloraemia [Recovering/Resolving]
  - Neutrophil count decreased [Unknown]
  - Blood sodium abnormal [Unknown]
